FAERS Safety Report 11323745 (Version 2)
Quarter: 2015Q3

REPORT INFORMATION
  Report Type: Spontaneous
  Country: US (occurrence: US)
  Receive Date: 20150730
  Receipt Date: 20150805
  Transmission Date: 20151125
  Serious: Yes (Hospitalization, Other)
  Sender: FDA-Public Use
  Company Number: US-ASTRAZENECA-2015SE72329

PATIENT
  Age: 66 Year
  Sex: Female
  Weight: 113.4 kg

DRUGS (7)
  1. ATACAND [Suspect]
     Active Substance: CANDESARTAN CILEXETIL
     Indication: CARDIAC DISORDER
     Dosage: UNKNOWN DOSE DAILY
     Route: 048
     Dates: start: 2011, end: 2013
  2. ASPIRIN. [Suspect]
     Active Substance: ASPIRIN
     Route: 065
  3. ASPIRIN. [Suspect]
     Active Substance: ASPIRIN
     Route: 065
  4. ATACAND [Suspect]
     Active Substance: CANDESARTAN CILEXETIL
     Indication: BLOOD PRESSURE ABNORMAL
     Dosage: UNKNOWN DOSE DAILY
     Route: 048
     Dates: start: 2011, end: 2013
  5. ASPIRIN. [Suspect]
     Active Substance: ASPIRIN
     Route: 065
  6. LISINOPRIL. [Suspect]
     Active Substance: LISINOPRIL
     Indication: BLOOD PRESSURE ABNORMAL
     Dosage: DAILY
     Route: 048
  7. VITAMIN D [Concomitant]
     Active Substance: CHOLECALCIFEROL
     Indication: VITAMIN D DEFICIENCY
     Dosage: DAILY
     Route: 048

REACTIONS (24)
  - Dyspepsia [Recovered/Resolved]
  - Asthenia [Unknown]
  - Retching [Unknown]
  - Arteriosclerosis coronary artery [Unknown]
  - Abdominal distension [Unknown]
  - Bradycardia [Unknown]
  - Atrial fibrillation [Unknown]
  - Arthralgia [Unknown]
  - Influenza like illness [Unknown]
  - Anaemia [Unknown]
  - Cough [Unknown]
  - Fluid retention [Unknown]
  - Arrhythmia [Unknown]
  - Ulcer haemorrhage [Recovered/Resolved]
  - Gastric haemorrhage [Unknown]
  - Drug hypersensitivity [Unknown]
  - Throat irritation [Unknown]
  - Malaise [Unknown]
  - Cardiac flutter [Unknown]
  - Gait disturbance [Unknown]
  - Drug ineffective [Unknown]
  - Dyspnoea [Unknown]
  - Nasopharyngitis [Unknown]
  - Pneumonia [Unknown]

NARRATIVE: CASE EVENT DATE: 2011
